FAERS Safety Report 19865413 (Version 1)
Quarter: 2021Q3

REPORT INFORMATION
  Report Type: Spontaneous
  Country: CA (occurrence: CA)
  Receive Date: 20210921
  Receipt Date: 20210921
  Transmission Date: 20211014
  Serious: Yes (Hospitalization)
  Sender: FDA-Public Use
  Company Number: CA-TAKEDA-2021TUS057143

PATIENT
  Age: 63 Year
  Sex: Male

DRUGS (3)
  1. NITROGLYCERIN. [Concomitant]
     Active Substance: NITROGLYCERIN
  2. HUMAN NORMAL IMMUNOGLOBULIN [Suspect]
     Active Substance: HUMAN IMMUNOGLOBULIN G
     Indication: CHRONIC INFLAMMATORY DEMYELINATING POLYRADICULONEUROPATHY
     Dosage: UNK
     Route: 058
  3. HUMAN NORMAL IMMUNOGLOBULIN [Suspect]
     Active Substance: HUMAN IMMUNOGLOBULIN G
     Dosage: 48 GRAM, 1/WEEK
     Route: 058

REACTIONS (5)
  - Injection site bruising [Unknown]
  - Insomnia [Unknown]
  - Hypotension [Unknown]
  - Pallor [Unknown]
  - Myocardial infarction [Unknown]
